FAERS Safety Report 8202706-5 (Version None)
Quarter: 2012Q1

REPORT INFORMATION
  Report Type: 
  Country: None (occurrence: None)
  Receive Date: 20120312
  Receipt Date: 20120301
  Transmission Date: 20120608
  Serious: Yes (Hospitalization)
  Sender: FDA-Public Use
  Company Number: NZ-ASTRAZENECA-2012SE14581

PATIENT
  Age: 88 Year
  Sex: Female

DRUGS (7)
  1. NAPROSYN [Concomitant]
  2. DHC [Concomitant]
  3. FENTANYL [Concomitant]
  4. AMITRIPTYLINE HCL [Concomitant]
  5. GABAPENTIN [Concomitant]
  6. VIMOVO [Suspect]
     Indication: POST HERPETIC NEURALGIA
     Dosage: 500/20 MG, ONE DAILY
     Route: 048
     Dates: start: 20120201
  7. CODEINE SULFATE [Concomitant]

REACTIONS (2)
  - URINARY TRACT INFECTION [None]
  - DEEP VEIN THROMBOSIS [None]
